FAERS Safety Report 16833645 (Version 1)
Quarter: 2019Q3

REPORT INFORMATION
  Report Type: Spontaneous
  Country: US (occurrence: US)
  Receive Date: 20190920
  Receipt Date: 20190920
  Transmission Date: 20191005
  Serious: No
  Sender: FDA-Public Use
  Company Number: US-IPSEN BIOPHARMACEUTICALS, INC.-2019-16938

PATIENT
  Sex: Female

DRUGS (1)
  1. DYSPORT [Suspect]
     Active Substance: ABOBOTULINUMTOXINA
     Indication: SKIN WRINKLING
     Dosage: NOT REPORTED
     Dates: start: 20190613, end: 20190613

REACTIONS (4)
  - Head discomfort [Unknown]
  - Eyelid ptosis [Unknown]
  - Therapeutic response shortened [Unknown]
  - Blepharospasm [Recovered/Resolved]

NARRATIVE: CASE EVENT DATE: 201906
